FAERS Safety Report 12589299 (Version 1)
Quarter: 2016Q3

REPORT INFORMATION
  Report Type: Spontaneous
  Country: US (occurrence: US)
  Receive Date: 20160725
  Receipt Date: 20160725
  Transmission Date: 20161109
  Serious: No
  Sender: FDA-Public Use
  Company Number: US-JNJFOC-20160609952

PATIENT
  Age: 85 Year
  Sex: Female
  Weight: 56.7 kg

DRUGS (8)
  1. MOTRIN IB [Suspect]
     Active Substance: IBUPROFEN
     Route: 048
  2. MOTRIN IB [Suspect]
     Active Substance: IBUPROFEN
     Indication: MUSCULOSKELETAL PAIN
     Dosage: 1 CAPLET, TWICE
     Route: 048
     Dates: start: 20160607
  3. LOSARTAN. [Concomitant]
     Active Substance: LOSARTAN
     Indication: HYPERTENSION
     Dosage: 1 PILL A DAY, 8 MONTHS
     Route: 065
  4. VITAMIN C [Concomitant]
     Active Substance: ASCORBIC ACID
     Indication: NUTRITIONAL SUPPLEMENTATION
     Dosage: 1 PILL A DAY, 3 YEARS
     Route: 065
  5. VITAMIN B NOS [Concomitant]
     Active Substance: VITAMIN B
     Indication: NUTRITIONAL SUPPLEMENTATION
     Dosage: 1 PILL A DAY, 3 YEARS
     Route: 065
  6. CALCIUM [Concomitant]
     Active Substance: CALCIUM
     Indication: NUTRITIONAL SUPPLEMENTATION
     Dosage: 1 PILL A DAY, 3 YEARS
     Route: 065
  7. PRILOSEC [Concomitant]
     Active Substance: OMEPRAZOLE MAGNESIUM
     Indication: GASTROOESOPHAGEAL REFLUX DISEASE
     Dosage: 2 PILLS A DAY, 8 MONTHS
     Route: 065
  8. MULTIVITAMINS [Concomitant]
     Active Substance: VITAMINS
     Indication: NUTRITIONAL SUPPLEMENTATION
     Dosage: 1 PILL A DAY, 3 YEARS
     Route: 065

REACTIONS (3)
  - Malaise [Not Recovered/Not Resolved]
  - Abdominal discomfort [Not Recovered/Not Resolved]
  - Product lot number issue [Unknown]

NARRATIVE: CASE EVENT DATE: 20160607
